FAERS Safety Report 4885932-2 (Version None)
Quarter: 2006Q1

REPORT INFORMATION
  Report Type: 
  Country: None (occurrence: None)
  Receive Date: 20060118
  Receipt Date: 20060105
  Transmission Date: 20060701
  Serious: Yes (Death)
  Sender: FDA-Public Use
  Company Number: US200601000800

PATIENT
  Age: 48 Year
  Sex: Male

DRUGS (3)
  1. ZYPREXA [Suspect]
     Indication: BIPOLAR DISORDER
     Dosage: ORAL
     Route: 048
  2. DILANTIN [Concomitant]
  3. LITHIUM CARBONATE [Concomitant]

REACTIONS (3)
  - CONVULSION [None]
  - FATIGUE [None]
  - SOMNOLENCE [None]
